FAERS Safety Report 10035736 (Version 1)
Quarter: 2014Q1

REPORT INFORMATION
  Report Type: Spontaneous
  Country: FR (occurrence: None)
  Receive Date: 20140321
  Receipt Date: 20140321
  Transmission Date: 20141002
  Serious: Yes (Other)
  Sender: FDA-Public Use
  Company Number: SYM-2014-18626

PATIENT
  Age: 60 Year
  Sex: Male

DRUGS (8)
  1. MONO-TILDIEM LP [Suspect]
     Indication: HYPERTENSION
     Dosage: 1 IN 1 D
     Route: 048
     Dates: end: 20131120
  2. RISPERDAL [Suspect]
     Indication: PRODUCT USED FOR UNKNOWN INDICATION
     Route: 048
     Dates: start: 20131112, end: 20131120
  3. KARDEGIC [Concomitant]
  4. CRESTOR [Concomitant]
  5. FUNGIZONE [Concomitant]
  6. OMEPRAZOLE [Concomitant]
  7. SPECIAFOLDING [Concomitant]
  8. COVERSYL [Concomitant]

REACTIONS (2)
  - Electrocardiogram QT prolonged [None]
  - Electrocardiogram repolarisation abnormality [None]
